FAERS Safety Report 7013580-7 (Version None)
Quarter: 2010Q3

REPORT INFORMATION
  Report Type: 
  Country: None (occurrence: None)
  Receive Date: 20100924
  Receipt Date: 20100914
  Transmission Date: 20110219
  Serious: Yes (Hospitalization)
  Sender: FDA-Public Use
  Company Number: GXKR2010FR09434

PATIENT
  Age: 19 Year
  Sex: Female

DRUGS (5)
  1. PSEUDOEPHEDRINE HCL [Suspect]
     Indication: NASOPHARYNGITIS
     Dosage: 60 MG, UNK
     Route: 048
  2. HYDROXYCHLOROQUINE [Concomitant]
  3. ENALAPRIL [Concomitant]
  4. LOSARTAN POTASSIUM [Concomitant]
  5. PREDNISONE TAB [Concomitant]
     Dosage: 1 MG/KG/DAY

REACTIONS (3)
  - HEADACHE [None]
  - REVERSIBLE POSTERIOR LEUKOENCEPHALOPATHY SYNDROME [None]
  - VOMITING [None]
